FAERS Safety Report 8665026 (Version 2)
Quarter: 2012Q4

REPORT INFORMATION
  Report Type: 
  Country: DE (occurrence: DE)
  Receive Date: 20120716
  Receipt Date: 20120831
  Transmission Date: 20130627
  Serious: Yes (Other)
  Sender: FDA-Public Use
  Company Number: DE-AMGEN-DEUSP2012042718

PATIENT
  Age: 64 Year
  Sex: Male

DRUGS (6)
  1. XGEVA [Suspect]
     Indication: TRANSITIONAL CELL CARCINOMA
     Dosage: 120 mg, q4wk
     Dates: start: 201110
  2. ENALAPRIL [Concomitant]
     Indication: HYPERTENSION
     Dosage: 10 mg, qd
     Route: 048
  3. OXYCODON [Concomitant]
     Indication: BONE PAIN
     Dosage: 20 mg, bid
     Route: 048
     Dates: start: 20111122
  4. METAMIZOL /06276702/ [Concomitant]
     Indication: BONE PAIN
     Dosage: 500 mg, UNK
     Route: 048
     Dates: start: 20111122
  5. CARBOPLATIN [Concomitant]
     Indication: BLADDER TRANSITIONAL CELL CARCINOMA
     Dosage: UNK
     Dates: start: 201111
  6. GEMCITABINE [Concomitant]
     Indication: BLADDER TRANSITIONAL CELL CARCINOMA
     Dosage: UNK
     Dates: start: 201111

REACTIONS (10)
  - Extraocular muscle disorder [Not Recovered/Not Resolved]
  - Diplopia [Not Recovered/Not Resolved]
  - Metastasis [Not Recovered/Not Resolved]
  - Renal failure [Recovered/Resolved]
  - Fatigue [Unknown]
  - Anaemia [Unknown]
  - Decreased appetite [Unknown]
  - Back pain [Unknown]
  - Disease progression [Unknown]
  - Pancytopenia [Unknown]
